FAERS Safety Report 17968020 (Version 2)
Quarter: 2020Q3

REPORT INFORMATION
  Report Type: Spontaneous
  Country: FR (occurrence: FR)
  Receive Date: 20200701
  Receipt Date: 20200709
  Transmission Date: 20201103
  Serious: Yes (Hospitalization)
  Sender: FDA-Public Use
  Company Number: NVSC2020FR180824

PATIENT
  Age: 29 Year
  Sex: Female
  Weight: 70 kg

DRUGS (3)
  1. PAROXETIN [Suspect]
     Active Substance: PAROXETINE HYDROCHLORIDE
     Indication: INTENTIONAL OVERDOSE
     Dosage: 36 DF TOTAL
     Route: 048
     Dates: start: 20200405, end: 20200405
  2. IXPRIM [Suspect]
     Active Substance: ACETAMINOPHEN\TRAMADOL HYDROCHLORIDE
     Indication: INTENTIONAL OVERDOSE
     Dosage: 20 DF TOTAL
     Route: 048
     Dates: start: 20200405, end: 20200405
  3. PARACETAMOL [Suspect]
     Active Substance: ACETAMINOPHEN
     Indication: INTENTIONAL OVERDOSE
     Dosage: 32 G TOTAL
     Route: 048
     Dates: start: 20200405, end: 20200405

REACTIONS (8)
  - Oxygen saturation decreased [Recovering/Resolving]
  - Hemiplegia [Not Recovered/Not Resolved]
  - Poisoning deliberate [Recovered/Resolved with Sequelae]
  - Hepatocellular injury [Recovering/Resolving]
  - Cholestasis [Not Recovered/Not Resolved]
  - Serotonin syndrome [Recovered/Resolved]
  - Hepatic failure [Recovered/Resolved]
  - Somnolence [Recovered/Resolved]

NARRATIVE: CASE EVENT DATE: 20200405
